FAERS Safety Report 24053692 (Version 1)
Quarter: 2024Q3

REPORT INFORMATION
  Report Type: Spontaneous
  Country: TR (occurrence: TR)
  Receive Date: 20240705
  Receipt Date: 20240705
  Transmission Date: 20241016
  Serious: Yes (Life-Threatening, Hospitalization, Other)
  Sender: NOVARTIS
  Company Number: TR-002147023-NVSC2024TR139144

PATIENT
  Age: 22 Year
  Sex: Female
  Weight: 90 kg

DRUGS (3)
  1. TEGRETOL XR [Suspect]
     Active Substance: CARBAMAZEPINE
     Indication: Depression
     Dosage: UNK
     Route: 048
     Dates: start: 20150805, end: 20151106
  2. ARIPIPRAZOLE [Suspect]
     Active Substance: ARIPIPRAZOLE
     Indication: Depression
     Dosage: UNK
     Route: 048
     Dates: start: 20150805, end: 20151106
  3. FLUOXETINE HYDROCHLORIDE [Suspect]
     Active Substance: FLUOXETINE HYDROCHLORIDE
     Indication: Depression
     Dosage: UNK
     Route: 048
     Dates: start: 20150805, end: 20151106

REACTIONS (8)
  - Pain in extremity [Recovered/Resolved with Sequelae]
  - Contusion [Recovered/Resolved with Sequelae]
  - Sensory loss [Recovered/Resolved with Sequelae]
  - Tissue injury [Recovered/Resolved with Sequelae]
  - Peripheral artery thrombosis [Recovered/Resolved with Sequelae]
  - Peripheral embolism [Recovered/Resolved with Sequelae]
  - Raynaud^s phenomenon [Unknown]
  - Off label use [Unknown]

NARRATIVE: CASE EVENT DATE: 20151015
